FAERS Safety Report 17502517 (Version 1)
Quarter: 2020Q1

REPORT INFORMATION
  Report Type: Spontaneous
  Country: US (occurrence: US)
  Receive Date: 20200305
  Receipt Date: 20200305
  Transmission Date: 20200409
  Serious: Yes (Other)
  Sender: FDA-Public Use
  Company Number: US-PFIZER INC-2020095795

PATIENT
  Age: 64 Year
  Sex: Female
  Weight: 50.8 kg

DRUGS (1)
  1. CHANTIX [Suspect]
     Active Substance: VARENICLINE TARTRATE
     Indication: SMOKING CESSATION THERAPY
     Dosage: 1 DF, 2X/DAY [ONE IN THE MORNING AND ONE AT NIGHT]
     Route: 048
     Dates: start: 2015

REACTIONS (4)
  - Dyspnoea [Unknown]
  - Chronic obstructive pulmonary disease [Unknown]
  - Osteoporosis [Unknown]
  - Neoplasm malignant [Unknown]
